FAERS Safety Report 6845963-X (Version None)
Quarter: 2010Q3

REPORT INFORMATION
  Report Type: 
  Country: None (occurrence: None)
  Receive Date: 20100715
  Receipt Date: 20070830
  Transmission Date: 20110219
  Serious: No
  Sender: FDA-Public Use
  Company Number: US-PFIZER INC-2007074276

PATIENT
  Age: 32 Year
  Sex: Female

DRUGS (4)
  1. CHANTIX [Suspect]
     Indication: SMOKING CESSATION THERAPY
  2. PAXIL [Concomitant]
     Indication: ANXIETY
  3. AMBIEN [Concomitant]
  4. XANAX [Concomitant]
     Indication: ANXIETY

REACTIONS (4)
  - ANXIETY [None]
  - DIZZINESS [None]
  - DYSPEPSIA [None]
  - NAUSEA [None]
